FAERS Safety Report 4661896-1 (Version None)
Quarter: 2005Q2

REPORT INFORMATION
  Report Type: 
  Country: None (occurrence: None)
  Receive Date: 20050513
  Receipt Date: 20041214
  Transmission Date: 20051028
  Serious: Yes (Hospitalization)
  Sender: FDA-Public Use
  Company Number: DE-MERCK-0412DEU00129

PATIENT
  Age: 59 Year
  Sex: Male

DRUGS (6)
  1. VIOXX [Suspect]
     Indication: UPPER LIMB FRACTURE
     Route: 048
     Dates: start: 20010101
  2. VIOXX [Suspect]
     Route: 048
     Dates: end: 20040101
  3. VIOXX [Suspect]
     Route: 048
     Dates: start: 20030329, end: 20030402
  4. AMLODIPINE BESYLATE [Suspect]
     Indication: HYPERTENSION
     Route: 048
  5. CARVEDILOL [Concomitant]
     Route: 048
  6. RAMIPRIL [Concomitant]
     Route: 048

REACTIONS (4)
  - ATRIAL FIBRILLATION [None]
  - CARDIAC FAILURE [None]
  - LEFT VENTRICULAR FAILURE [None]
  - OEDEMA [None]
